FAERS Safety Report 9171120 (Version 1)
Quarter: 2013Q1

REPORT INFORMATION
  Report Type: Spontaneous
  Country: VE (occurrence: VE)
  Receive Date: 20130319
  Receipt Date: 20130319
  Transmission Date: 20140127
  Serious: Yes (Hospitalization)
  Sender: FDA-Public Use
  Company Number: PHHY2011VE84620

PATIENT
  Sex: Female

DRUGS (5)
  1. XOLAIR [Suspect]
     Indication: ASTHMA
     Dosage: 300 MG (MONTHLY)
     Route: 058
     Dates: start: 201105, end: 201106
  2. XOLAIR [Suspect]
     Indication: DYSPNOEA
  3. DIOVAN [Suspect]
     Indication: HYPERTENSION
     Dosage: 80 MG, DAILY
     Route: 048
     Dates: start: 2010
  4. VANNAIR [Concomitant]
     Indication: ASTHMA
     Dosage: UNK UKN, UNK
     Dates: start: 2009, end: 2011
  5. ZOLTUM [Concomitant]
     Indication: GASTRIC DISORDER
     Dosage: 40 MG, QD
     Route: 048

REACTIONS (6)
  - Pancreatitis [Recovered/Resolved]
  - Bacterial infection [Recovered/Resolved]
  - Anaemia [Not Recovered/Not Resolved]
  - Haemoglobin decreased [Unknown]
  - Abdominal pain [Recovered/Resolved]
  - Dyspnoea [Recovered/Resolved]
